FAERS Safety Report 22811124 (Version 2)
Quarter: 2023Q4

REPORT INFORMATION
  Report Type: Spontaneous
  Country: FR (occurrence: FR)
  Receive Date: 20230810
  Receipt Date: 20231206
  Transmission Date: 20240110
  Serious: Yes (Death, Life-Threatening)
  Sender: FDA-Public Use
  Company Number: None

PATIENT
  Age: 62 Year
  Sex: Male
  Weight: 130 kg

DRUGS (5)
  1. PROPOFOL [Suspect]
     Active Substance: PROPOFOL
     Indication: Anaesthesia
     Dosage: EMULSION FOR INFUSION?INTRAVENOUS
     Dates: start: 20230412, end: 20230412
  2. TRACRIUM [Suspect]
     Active Substance: ATRACURIUM BESYLATE
     Indication: General anaesthesia
     Dosage: UNKNOWN ?INTRAVENOUS
     Dates: start: 20230412, end: 20230412
  3. DEXAMETHASONE ACETATE [Suspect]
     Active Substance: DEXAMETHASONE ACETATE
     Indication: Aortic bypass
     Dosage: UNKNOWN ?INTRAVENOUS
     Dates: start: 20230412, end: 20230412
  4. CLINDAMYCIN [Suspect]
     Active Substance: CLINDAMYCIN
     Indication: Aortic bypass
     Dosage: UNKNOWN?INTRAVENOUS
     Dates: start: 20230412, end: 20230412
  5. SUFENTA [Suspect]
     Active Substance: SUFENTANIL CITRATE
     Indication: General anaesthesia
     Dosage: UNKNOWN ?INTRAVENOUS
     Dates: start: 20230412, end: 20230412

REACTIONS (2)
  - Cerebrovascular accident [Fatal]
  - Cardio-respiratory arrest [Fatal]

NARRATIVE: CASE EVENT DATE: 20230412
